FAERS Safety Report 4346449-7 (Version None)
Quarter: 2004Q2

REPORT INFORMATION
  Report Type: 
  Country: None (occurrence: None)
  Receive Date: 20040426
  Receipt Date: 20030225
  Transmission Date: 20050107
  Serious: Yes (Hospitalization)
  Sender: FDA-Public Use
  Company Number: US-BRISTOL-MYERS SQUIBB COMPANY-12195012

PATIENT
  Age: 71 Year
  Sex: Female

DRUGS (4)
  1. CARBOPLATIN [Suspect]
     Indication: OVARIAN CANCER
     Route: 042
     Dates: start: 20030212, end: 20030212
  2. TAXOL [Concomitant]
     Indication: OVARIAN CANCER
  3. DECADRON [Concomitant]
     Indication: PREMEDICATION
     Dates: start: 20030212, end: 20030212
  4. ANZEMET [Concomitant]
     Indication: PREMEDICATION
     Dates: start: 20030212, end: 20030212

REACTIONS (1)
  - HYPERSENSITIVITY [None]
